FAERS Safety Report 11411239 (Version 2)
Quarter: 2015Q3

REPORT INFORMATION
  Report Type: Spontaneous
  Country: US (occurrence: US)
  Receive Date: 20150821
  Receipt Date: 20150903
  Transmission Date: 20151125
  Serious: No
  Sender: FDA-Public Use
  Company Number: US-ELI_LILLY_AND_COMPANY-US201005004985

PATIENT
  Sex: Male

DRUGS (3)
  1. HUMALOG [Suspect]
     Active Substance: INSULIN LISPRO
     Indication: DIABETES MELLITUS
     Dosage: 100 U, AS NEEDED
     Dates: start: 2002
  2. HUMALOG [Suspect]
     Active Substance: INSULIN LISPRO
  3. HUMULIN N [Suspect]
     Active Substance: INSULIN HUMAN

REACTIONS (2)
  - Eye operation [Recovered/Resolved]
  - Blood glucose increased [Recovered/Resolved]
